FAERS Safety Report 5344224-8 (Version None)
Quarter: 2007Q2

REPORT INFORMATION
  Report Type: 
  Country: None (occurrence: None)
  Receive Date: 20070531
  Receipt Date: 20070531
  Transmission Date: 20071010
  Serious: Yes (Hospitalization)
  Sender: FDA-Public Use
  Company Number: None

PATIENT
  Age: 95 Year
  Sex: Female

DRUGS (8)
  1. AVELOX [Suspect]
     Indication: UPPER RESPIRATORY TRACT INFECTION
     Dosage: IV
     Route: 042
     Dates: start: 20070205, end: 20070206
  2. DIOVAN [Concomitant]
  3. FOSAMAX [Concomitant]
  4. OSCAL+VIT D [Concomitant]
  5. M.V.I. [Concomitant]
  6. PAROXETINE [Concomitant]
  7. DONEPEZIL HCL [Concomitant]
  8. TYLENOL [Concomitant]

REACTIONS (3)
  - HYPOTENSION [None]
  - IMMUNE SYSTEM DISORDER [None]
  - OXYGEN SATURATION DECREASED [None]
